FAERS Safety Report 6271858-9 (Version None)
Quarter: 2009Q3

REPORT INFORMATION
  Report Type: 
  Country: None (occurrence: None)
  Receive Date: 20090717
  Receipt Date: 20090706
  Transmission Date: 20100115
  Serious: Yes (Hospitalization)
  Sender: FDA-Public Use
  Company Number: PHHY2009DE27890

PATIENT
  Age: 50 Year
  Sex: Female

DRUGS (1)
  1. ZOMETA [Suspect]
     Indication: METASTASES TO BONE
     Dosage: 4 MG/ EVERY 4 WEEKS
     Route: 042
     Dates: start: 20080101

REACTIONS (3)
  - ANKLE FRACTURE [None]
  - ANKLE OPERATION [None]
  - IMPAIRED HEALING [None]
